FAERS Safety Report 5974217-9 (Version None)
Quarter: 2008Q4

REPORT INFORMATION
  Report Type: 
  Country: None (occurrence: None)
  Receive Date: 20081201
  Receipt Date: 20081119
  Transmission Date: 20090506
  Serious: Yes (Other)
  Sender: FDA-Public Use
  Company Number: LY-GILEAD-2008-0019170

PATIENT
  Age: 10 Year
  Sex: Male

DRUGS (3)
  1. TENOFOVIR DISOPROXIL FUMARATE [Suspect]
     Indication: HIV INFECTION
     Dates: start: 20060901
  2. ABACAVIR [Suspect]
     Indication: HIV INFECTION
     Dates: start: 20060901
  3. LOPINAVIR AND RITONAVIR [Suspect]
     Indication: HIV INFECTION
     Dates: start: 20060901

REACTIONS (8)
  - ASTHENIA [None]
  - BLOOD ALKALINE PHOSPHATASE INCREASED [None]
  - FANCONI SYNDROME ACQUIRED [None]
  - GAIT DISTURBANCE [None]
  - HYPOPHOSPHATAEMIA [None]
  - OSTEOPENIA [None]
  - PAIN IN EXTREMITY [None]
  - RICKETS [None]
